FAERS Safety Report 14942013 (Version 1)
Quarter: 2018Q2

REPORT INFORMATION
  Report Type: Report from Study
  Country: BR (occurrence: BR)
  Receive Date: 20180527
  Receipt Date: 20180527
  Transmission Date: 20180711
  Serious: Yes (Death)
  Sender: FDA-Public Use
  Company Number: PHHY2018BR007827

PATIENT
  Sex: Female
  Weight: 52 kg

DRUGS (1)
  1. EXELON PATCH [Suspect]
     Active Substance: RIVASTIGMINE
     Indication: PARKINSON^S DISEASE
     Dosage: UNK, QD
     Route: 062
     Dates: end: 20180411

REACTIONS (6)
  - Urinary tract infection [Fatal]
  - Product use in unapproved indication [Unknown]
  - Nausea [Recovered/Resolved]
  - Balance disorder [Fatal]
  - Renal injury [Fatal]
  - Lung infection [Fatal]
